FAERS Safety Report 7344790-7 (Version None)
Quarter: 2011Q1

REPORT INFORMATION
  Report Type: 
  Country: None (occurrence: None)
  Receive Date: 20110307
  Receipt Date: 20110307
  Transmission Date: 20110831
  Serious: Yes (Other)
  Sender: FDA-Public Use
  Company Number: None

PATIENT
  Age: 52 Year
  Sex: Male
  Weight: 58.19 kg

DRUGS (1)
  1. AMPHOTERICIN B 164 MG GILEAD SCIENCES, INC. [Suspect]
     Indication: ANTIFUNGAL TREATMENT
     Dosage: 164 MG Q24H IV
     Route: 042
     Dates: start: 20101004, end: 20101008

REACTIONS (1)
  - RENAL FAILURE ACUTE [None]
